FAERS Safety Report 9939050 (Version 1)
Quarter: 2014Q1

REPORT INFORMATION
  Report Type: Report from Study
  Country: US (occurrence: US)
  Receive Date: 20140303
  Receipt Date: 20140303
  Transmission Date: 20141002
  Serious: No
  Sender: FDA-Public Use
  Company Number: US-ABBVIE-13P-163-1034067-00

PATIENT
  Sex: Female

DRUGS (6)
  1. HUMIRA [Suspect]
     Indication: ANKYLOSING SPONDYLITIS
     Route: 058
     Dates: start: 2006
  2. PLAQUENIL [Concomitant]
     Indication: ANKYLOSING SPONDYLITIS
  3. VICODIN [Concomitant]
     Indication: SPINAL COLUMN STENOSIS
  4. VICODIN [Concomitant]
     Indication: SCOLIOSIS
  5. VICODIN [Concomitant]
     Indication: ANKYLOSING SPONDYLITIS
  6. UNKNOWN MEDICATION [Concomitant]
     Indication: HYPERTENSION

REACTIONS (3)
  - Stress [Recovered/Resolved]
  - Rash pruritic [Recovered/Resolved]
  - Rash pruritic [Unknown]
